FAERS Safety Report 8854099 (Version 1)
Quarter: 2012Q4

REPORT INFORMATION
  Report Type: 
  Country: US (occurrence: US)
  Receive Date: 20121022
  Receipt Date: 20121022
  Transmission Date: 20130627
  Serious: Yes (Hospitalization)
  Sender: FDA-Public Use
  Company Number: US-BAYER-2012-107865

PATIENT
  Age: 50 Year
  Sex: Female

DRUGS (3)
  1. YAZ [Suspect]
  2. PROZAC [Concomitant]
     Dosage: 10 mg, UNK
     Route: 048
  3. FLUOXETINE HCL [Concomitant]
     Dosage: 10 mg, UNK
     Route: 048

REACTIONS (2)
  - Pulmonary embolism [None]
  - Deep vein thrombosis [None]
